FAERS Safety Report 12709872 (Version 1)
Quarter: 2016Q3

REPORT INFORMATION
  Report Type: Spontaneous
  Country: US (occurrence: None)
  Receive Date: 20160901
  Receipt Date: 20160901
  Transmission Date: 20161109
  Serious: Yes (Hospitalization)
  Sender: FDA-Public Use
  Company Number: None

PATIENT
  Age: 36 Year
  Sex: Female

DRUGS (7)
  1. VICODIN [Concomitant]
     Active Substance: ACETAMINOPHEN\HYDROCODONE BITARTRATE
  2. VITAMIN D3 [Concomitant]
     Active Substance: CHOLECALCIFEROL
  3. GABAPENTIN. [Concomitant]
     Active Substance: GABAPENTIN
  4. MIRTAZAPINE. [Concomitant]
     Active Substance: MIRTAZAPINE
  5. NUVIGIL [Concomitant]
     Active Substance: ARMODAFINIL
  6. DOCQLACE [Concomitant]
     Active Substance: DOCUSATE SODIUM
  7. GILENYA [Suspect]
     Active Substance: FINGOLIMOD HYDROCHLORIDE
     Indication: MULTIPLE SCLEROSIS
     Route: 048
     Dates: start: 20140528

REACTIONS (1)
  - Multiple sclerosis relapse [None]

NARRATIVE: CASE EVENT DATE: 20160826
